FAERS Safety Report 8473052-X (Version None)
Quarter: 2012Q2

REPORT INFORMATION
  Report Type: 
  Country: None (occurrence: None)
  Receive Date: 20120627
  Receipt Date: 20120615
  Transmission Date: 20120825
  Serious: Yes (Hospitalization, Other)
  Sender: FDA-Public Use
  Company Number: AT-ROCHE-1079017

PATIENT
  Age: 50 Year
  Sex: Male

DRUGS (1)
  1. VEMURAFENIB [Suspect]
     Indication: MALIGNANT MELANOMA
     Dosage: DATE OF LAST DOSE PRIOR TO VERTIGO, HEARING LOSS AND PARESIS: 14/JUN/2012
     Route: 048
     Dates: start: 20120116, end: 20120614

REACTIONS (3)
  - FACIAL PARESIS [None]
  - VERTIGO [None]
  - DEAFNESS [None]
